FAERS Safety Report 21957974 (Version 1)
Quarter: 2023Q1

REPORT INFORMATION
  Report Type: Spontaneous
  Country: CN (occurrence: CN)
  Receive Date: 20230206
  Receipt Date: 20230206
  Transmission Date: 20230418
  Serious: Yes (Other)
  Sender: FDA-Public Use
  Company Number: CN-PFIZER INC-PV202300021165

PATIENT
  Age: 79 Year
  Sex: Male
  Weight: 50 kg

DRUGS (3)
  1. CEFOPERAZONE SODIUM\SULBACTAM SODIUM [Suspect]
     Active Substance: CEFOPERAZONE SODIUM\SULBACTAM SODIUM
     Indication: Pneumonia bacterial
     Dosage: 1.5 G, 3X/DAY (EVERY 8 HOURS)
     Route: 041
     Dates: start: 20230118, end: 20230124
  2. ZYVOX [Suspect]
     Active Substance: LINEZOLID
     Indication: Pneumonia bacterial
     Dosage: 600 MG, 2X/DAY
     Route: 048
     Dates: start: 20230114, end: 20230120
  3. CHLORIDE SODIUM [Concomitant]
     Indication: Vehicle solution use
     Dosage: 100 ML, 3X/DAY
     Route: 041
     Dates: start: 20230118, end: 20230124

REACTIONS (2)
  - Platelet count decreased [Recovering/Resolving]
  - Off label use [Unknown]

NARRATIVE: CASE EVENT DATE: 20230118
